FAERS Safety Report 6739837-2 (Version None)
Quarter: 2010Q2

REPORT INFORMATION
  Report Type: 
  Country: None (occurrence: None)
  Receive Date: 20100525
  Receipt Date: 20100513
  Transmission Date: 20101027
  Serious: Yes (Other)
  Sender: FDA-Public Use
  Company Number: PHHY2010JP21582

PATIENT
  Sex: Male
  Weight: 52 kg

DRUGS (4)
  1. ZOMETA [Suspect]
     Indication: METASTASES TO BONE
     Dosage: 4 MG, QMO
     Route: 042
     Dates: start: 20090618, end: 20100105
  2. MELBIN [Concomitant]
     Indication: DIABETES MELLITUS
     Dosage: 3 DF, UNK
     Route: 048
  3. TS 1 [Concomitant]
     Indication: CARCINOMA IN SITU OF SKIN
     Dosage: 120 MG, UNK
     Route: 048
     Dates: start: 20091215
  4. GASLON [Concomitant]
     Indication: PROPHYLAXIS AGAINST GASTROINTESTINAL ULCER
     Dosage: 4 MG, UNK
     Route: 048
     Dates: start: 20091215

REACTIONS (6)
  - BONE DISORDER [None]
  - GLOSSITIS [None]
  - ORAL SURGERY [None]
  - OSTEOMYELITIS [None]
  - PRIMARY SEQUESTRUM [None]
  - STOMATITIS [None]
